FAERS Safety Report 9175673 (Version 1)
Quarter: 2012Q4

REPORT INFORMATION
  Report Type: 
  Country: SE (occurrence: SE)
  Receive Date: 20120915
  Receipt Date: 20120915
  Transmission Date: 20130627
  Serious: Yes (Disabling)
  Sender: FDA-Public Use
  Company Number: SE-009507513-1209SWE003378

PATIENT

DRUGS (6)
  1. JANUMET [Suspect]
     Dosage: 50 mg/1000 mg, bid
     Route: 048
     Dates: end: 20111024
  2. DICLOFENAC [Suspect]
     Indication: PAIN
     Dosage: 50 mg, 1 - 3 times
  3. INSULATARD (INSULIN HUMAN, ISOPHANE) [Concomitant]
     Dosage: 40 IE/ml
     Route: 042
  4. GLIBENCLAMID [Concomitant]
     Dosage: 3.5 mg, UNK
     Route: 048
  5. TROMBYL [Concomitant]
     Dosage: 75 mg, UNK
     Route: 048
  6. SELOKEN ZOC [Concomitant]
     Dosage: 25 mg, UNK
     Route: 048

REACTIONS (5)
  - Nerve injury [Recovered/Resolved with Sequelae]
  - Hypoaesthesia [Recovered/Resolved with Sequelae]
  - Arthralgia [Recovered/Resolved with Sequelae]
  - Pain in extremity [Recovered/Resolved with Sequelae]
  - Renal impairment [Recovered/Resolved with Sequelae]
